FAERS Safety Report 7725648-8 (Version None)
Quarter: 2011Q3

REPORT INFORMATION
  Report Type: 
  Country: None (occurrence: None)
  Receive Date: 20110902
  Receipt Date: 20110825
  Transmission Date: 20111222
  Serious: Yes (Other)
  Sender: FDA-Public Use
  Company Number: JP-ASTELLAS-2011JP005971

PATIENT
  Age: 3 Year
  Sex: Female

DRUGS (2)
  1. PROGRAF [Suspect]
     Indication: JUVENILE ARTHRITIS
     Route: 048
  2. PREDNISOLONE [Concomitant]
     Indication: JUVENILE ARTHRITIS
     Route: 048

REACTIONS (3)
  - OFF LABEL USE [None]
  - ENTEROCOLITIS VIRAL [None]
  - GASTRIC ULCER [None]
